FAERS Safety Report 9191767 (Version 2)
Quarter: 2013Q1

REPORT INFORMATION
  Report Type: Report from Study
  Country: GB (occurrence: GB)
  Receive Date: 20130327
  Receipt Date: 20130327
  Transmission Date: 20140127
  Serious: Yes (Hospitalization)
  Sender: FDA-Public Use
  Company Number: GB-MERCK-0806GBR00057

PATIENT
  Age: 58 Year
  Sex: Male

DRUGS (14)
  1. NIACIN (+) LAROPIPRANT [Suspect]
     Indication: HIGH DENSITY LIPOPROTEIN DECREASED
     Route: 048
     Dates: start: 20080312
  2. MK-0524 [Suspect]
     Indication: HIGH DENSITY LIPOPROTEIN DECREASED
     Dosage: 1 G, QD
     Route: 048
     Dates: start: 20080129, end: 200802
  3. MK-0524 [Suspect]
     Dosage: 2 MG, QD
     Route: 048
     Dates: start: 200802, end: 20080311
  4. ZOCOR [Suspect]
     Indication: HYPERCHOLESTEROLAEMIA
     Dosage: 40 MG, QD
     Route: 048
     Dates: start: 20080104
  5. LISINOPRIL [Concomitant]
  6. MESALAMINE [Concomitant]
  7. ATENOLOL [Concomitant]
  8. ASPIRIN [Concomitant]
  9. AZATHIOPRINE [Concomitant]
  10. TOLBUTAMIDE [Concomitant]
  11. RANITIDINE [Concomitant]
  12. AMLODIPINE BESYLATE [Concomitant]
  13. THIAMINE [Concomitant]
  14. ASCORBIC ACID [Concomitant]

REACTIONS (1)
  - Blood glucose increased [Recovered/Resolved]
